FAERS Safety Report 7801597-1 (Version None)
Quarter: 2011Q4

REPORT INFORMATION
  Report Type: 
  Country: None (occurrence: None)
  Receive Date: 20111005
  Receipt Date: 20110930
  Transmission Date: 20120403
  Serious: Yes (Hospitalization, Other)
  Sender: FDA-Public Use
  Company Number: 20108967

PATIENT
  Sex: Female

DRUGS (1)
  1. LIORESAL [Suspect]
     Indication: MUSCLE SPASTICITY
     Dosage: 500 MCG, DAILY, INTRATHECAL
     Route: 037

REACTIONS (7)
  - INFECTION [None]
  - CONDITION AGGRAVATED [None]
  - IMPLANT SITE EFFUSION [None]
  - IMPLANT SITE INFECTION [None]
  - MUSCLE SPASTICITY [None]
  - IMPLANT SITE DISCHARGE [None]
  - COMA [None]
